FAERS Safety Report 5854326-5 (Version None)
Quarter: 2008Q3

REPORT INFORMATION
  Report Type: 
  Country: None (occurrence: None)
  Receive Date: 20080822
  Receipt Date: 20080730
  Transmission Date: 20090109
  Serious: Yes (Hospitalization)
  Sender: FDA-Public Use
  Company Number: BE-ABBOTT-08P-013-0471888-00

PATIENT
  Sex: Female
  Weight: 81 kg

DRUGS (7)
  1. HUMIRA [Suspect]
     Indication: PSORIASIS
     Route: 058
  2. METFORMIN HYDROCHLORIDE [Concomitant]
     Indication: DIABETES PROPHYLAXIS
     Dosage: 3 X 2C/DAY
     Dates: start: 20051015
  3. LANTUS [Concomitant]
     Indication: DIABETES MELLITUS
     Dates: start: 20070222
  4. INSULIN ASPART [Concomitant]
     Indication: DIABETES MELLITUS
     Dosage: 6 UNITS MORNING, 4 UNITS NOON, 4 UNITS EVENING
     Dates: start: 20070222
  5. PERINDOPRIL ERBUMINE [Concomitant]
     Indication: PROPHYLAXIS
     Dates: start: 20070222
  6. PAROXETINE HCL [Concomitant]
     Indication: DEPRESSION
     Dates: start: 20070522
  7. DOSULEPIN [Concomitant]
     Indication: DEPRESSION
     Dates: start: 20070522

REACTIONS (1)
  - DIABETES MELLITUS [None]
